FAERS Safety Report 12662772 (Version 1)
Quarter: 2016Q3

REPORT INFORMATION
  Report Type: Spontaneous
  Country: US (occurrence: US)
  Receive Date: 20160818
  Receipt Date: 20160818
  Transmission Date: 20161109
  Serious: No
  Sender: FDA-Public Use
  Company Number: US-BEH-2016072262

PATIENT
  Sex: Female
  Weight: 79.37 kg

DRUGS (33)
  1. DEXILANT [Concomitant]
     Active Substance: DEXLANSOPRAZOLE
  2. COZAAR [Concomitant]
     Active Substance: LOSARTAN POTASSIUM
  3. PROTONIX [Concomitant]
     Active Substance: PANTOPRAZOLE SODIUM
  4. REMERON [Concomitant]
     Active Substance: MIRTAZAPINE
  5. ASPIRIN. [Concomitant]
     Active Substance: ASPIRIN
  6. LUTEIN                             /01638501/ [Concomitant]
     Active Substance: LUTEIN
  7. PROLIA [Concomitant]
     Active Substance: DENOSUMAB
  8. CLONAZEPAM. [Concomitant]
     Active Substance: CLONAZEPAM
  9. SINGULAIR [Concomitant]
     Active Substance: MONTELUKAST SODIUM
  10. FLONASE [Concomitant]
     Active Substance: FLUTICASONE PROPIONATE
  11. LMX                                /00033401/ [Concomitant]
  12. POTASSIUM                          /00031402/ [Concomitant]
     Active Substance: POTASSIUM
  13. CHLORTHALIDONE. [Concomitant]
     Active Substance: CHLORTHALIDONE
  14. SYNTHROID [Concomitant]
     Active Substance: LEVOTHYROXINE SODIUM
  15. ABILIFY [Concomitant]
     Active Substance: ARIPIPRAZOLE
  16. DUONEB [Concomitant]
     Active Substance: ALBUTEROL SULFATE\IPRATROPIUM BROMIDE
  17. DIPHENHYDRAMINE. [Concomitant]
     Active Substance: DIPHENHYDRAMINE
  18. EPIPEN [Concomitant]
     Active Substance: EPINEPHRINE
  19. RANITIDINE. [Concomitant]
     Active Substance: RANITIDINE
  20. VITAMIN D [Concomitant]
     Active Substance: CHOLECALCIFEROL
  21. CHONDROITIN W/GLUCOSAMINE          /01430901/ [Concomitant]
  22. PLAQUENIL                          /00072602/ [Concomitant]
     Active Substance: HYDROXYCHLOROQUINE DIPHOSPHATE
  23. LEXAPRO [Concomitant]
     Active Substance: ESCITALOPRAM OXALATE
  24. ACIDOPHILUS [Concomitant]
     Active Substance: LACTOBACILLUS ACIDOPHILUS
  25. HIZENTRA [Suspect]
     Active Substance: HUMAN IMMUNOGLOBULIN G
     Indication: IMMUNODEFICIENCY COMMON VARIABLE
     Dosage: 12 G, QW
     Route: 058
     Dates: start: 20141027
  26. ACETAMINOPHEN. [Concomitant]
     Active Substance: ACETAMINOPHEN
  27. CALCIUM [Concomitant]
     Active Substance: CALCIUM
  28. RESTASIS [Concomitant]
     Active Substance: CYCLOSPORINE
  29. ADVAIR HFA [Concomitant]
     Active Substance: FLUTICASONE PROPIONATE\SALMETEROL XINAFOATE
  30. OMEGA-3                            /01866101/ [Concomitant]
     Active Substance: OMEGA-3 FATTY ACIDS
  31. WELLBUTRIN [Concomitant]
     Active Substance: BUPROPION HYDROCHLORIDE
  32. MUCINEX [Concomitant]
     Active Substance: GUAIFENESIN
  33. SPIRIVA [Concomitant]
     Active Substance: TIOTROPIUM BROMIDE MONOHYDRATE

REACTIONS (1)
  - Infusion site extravasation [Unknown]
